FAERS Safety Report 9728122 (Version 1)
Quarter: 2013Q4

REPORT INFORMATION
  Report Type: Spontaneous
  Country: JP (occurrence: None)
  Receive Date: 20131127
  Receipt Date: 20131127
  Transmission Date: 20140711
  Serious: Yes (Hospitalization, Other)
  Sender: FDA-Public Use
  Company Number: JP-2013-15385

PATIENT
  Age: 90 Year
  Sex: 0

DRUGS (3)
  1. SAMSCA (TOLVAPTAN) TABLET [Suspect]
     Indication: FLUID RETENTION
     Route: 048
     Dates: start: 20131107, end: 20131109
  2. LASIX (FUROSEMIDE) [Concomitant]
  3. LUPRAC (TORASEMIDE) [Concomitant]

REACTIONS (2)
  - Altered state of consciousness [None]
  - Hypernatraemia [None]
